FAERS Safety Report 20504090 (Version 2)
Quarter: 2022Q4

REPORT INFORMATION
  Report Type: Report from Study
  Country: US (occurrence: US)
  Receive Date: 20220222
  Receipt Date: 20221028
  Transmission Date: 20230113
  Serious: Yes (Disabling)
  Sender: FDA-Public Use
  Company Number: US-PFIZER INC-2016-03501

PATIENT
  Age: 53 Year
  Sex: Male
  Weight: 73.9 kg

DRUGS (17)
  1. BINIMETINIB [Suspect]
     Active Substance: BINIMETINIB
     Indication: Gastrointestinal stromal tumour
     Dosage: 30 MG, 2X/DAY
     Route: 048
     Dates: start: 20161007, end: 20161201
  2. IMATINIB [Suspect]
     Active Substance: IMATINIB
     Indication: Gastrointestinal stromal tumour
     Dosage: 400 MG, 1X/DAY
     Route: 048
     Dates: start: 20160926, end: 20161201
  3. IMATINIB [Suspect]
     Active Substance: IMATINIB
     Dosage: UNK
     Route: 048
     Dates: start: 20161219
  4. ZYRTEC [Concomitant]
     Active Substance: CETIRIZINE HYDROCHLORIDE
     Indication: Product used for unknown indication
     Dosage: 10 MG, 1X/DAY
     Route: 048
  5. TESSALON [Concomitant]
     Active Substance: BENZONATATE
     Indication: Cough
     Dosage: 100 MG, EVERY 8 HOURS AS NEEDED
     Route: 048
     Dates: start: 20161013
  6. LIDOCAINE VISCOUS [Concomitant]
     Active Substance: LIDOCAINE HYDROCHLORIDE
     Indication: Oral pain
     Dosage: 5 MILLILITER, 4 TIMES A DAY(BEFORE MEALS AND AT BEDTIME) X 30 DAYS, AS NEEDED
     Route: 061
     Dates: start: 20161104, end: 20161204
  7. DOXYCYCLINE HYCLATE [Concomitant]
     Active Substance: DOXYCYCLINE HYCLATE
     Indication: Rash
     Dosage: 100 MG, 1X/DAY
     Route: 048
     Dates: start: 20161021, end: 20161121
  8. DOXYCYCLINE HYCLATE [Concomitant]
     Active Substance: DOXYCYCLINE HYCLATE
     Dosage: 100 MG, 1X/DAY
     Route: 048
     Dates: start: 20161125
  9. VALACYCLOVIR HYDROCHLORIDE [Concomitant]
     Active Substance: VALACYCLOVIR HYDROCHLORIDE
     Indication: Product used for unknown indication
     Dosage: UNK
  10. TRIAMCINOLONE [Concomitant]
     Active Substance: TRIAMCINOLONE
     Indication: Product used for unknown indication
     Dosage: UNK
  11. HYDROCORTISONE [Concomitant]
     Active Substance: HYDROCORTISONE
     Indication: Product used for unknown indication
     Dosage: UNK
  12. HYDROXYZINE HYDROCHLORIDE [Concomitant]
     Active Substance: HYDROXYZINE HYDROCHLORIDE
     Indication: Product used for unknown indication
     Dosage: UNK
  13. FEXOFENADINE [Concomitant]
     Active Substance: FEXOFENADINE HYDROCHLORIDE
     Indication: Product used for unknown indication
     Dosage: UNK
  14. GELCLAIR [Concomitant]
     Indication: Product used for unknown indication
     Dosage: UNK
  15. OXYCODONE [Concomitant]
     Active Substance: OXYCODONE
     Indication: Product used for unknown indication
     Dosage: UNK
  16. PEPCID [ALUMINIUM HYDROXIDE;MAGNESIUM TRISILICATE;SODIUM ALGINATE] [Concomitant]
     Indication: Product used for unknown indication
     Dosage: UNK
  17. FLONASE [Concomitant]
     Active Substance: FLUTICASONE PROPIONATE
     Indication: Product used for unknown indication
     Dosage: UNK

REACTIONS (1)
  - Dropped head syndrome [Recovered/Resolved]

NARRATIVE: CASE EVENT DATE: 20161202
